FAERS Safety Report 25064679 (Version 1)
Quarter: 2025Q1

REPORT INFORMATION
  Report Type: Spontaneous
  Country: US (occurrence: US)
  Receive Date: 20250311
  Receipt Date: 20250311
  Transmission Date: 20250408
  Serious: No
  Sender: NEUROCRINE BIOSCIENCES
  Company Number: US-NEUROCRINE BIOSCIENCES INC.-2025NBI02253

PATIENT
  Age: 3 Decade
  Sex: Male

DRUGS (3)
  1. INGREZZA [Suspect]
     Active Substance: VALBENAZINE
     Indication: Tardive dyskinesia
     Route: 065
  2. LAMICTAL [Concomitant]
     Active Substance: LAMOTRIGINE
  3. PALIPERIDONE [Concomitant]
     Active Substance: PALIPERIDONE

REACTIONS (3)
  - Agitation [Recovered/Resolved]
  - Restlessness [Recovered/Resolved]
  - Drooling [Recovered/Resolved]
